FAERS Safety Report 21528971 (Version 1)
Quarter: 2022Q4

REPORT INFORMATION
  Report Type: Spontaneous
  Country: BR (occurrence: BR)
  Receive Date: 20221031
  Receipt Date: 20221031
  Transmission Date: 20230113
  Serious: Yes (Life-Threatening, Hospitalization, Other)
  Sender: FDA-Public Use
  Company Number: BR-SA-SAC20221030000759

PATIENT
  Age: 90 Year
  Sex: Female
  Weight: 92 kg

DRUGS (4)
  1. ENOXAPARIN SODIUM [Suspect]
     Active Substance: ENOXAPARIN SODIUM
     Indication: Thrombosis prophylaxis
     Dosage: 80 MG, BID, STRENGTH: 80 MG
     Route: 058
     Dates: start: 20220106, end: 20220108
  2. ENOXAPARIN SODIUM [Suspect]
     Active Substance: ENOXAPARIN SODIUM
     Dosage: CLEXANE 60MG IN THE MORNING AND 80MG IN THE EVENING
     Route: 058
     Dates: start: 20220109, end: 20220112
  3. ELIQUIS [Concomitant]
     Active Substance: APIXABAN
     Indication: Myocardial infarction
     Dosage: 5 MG, BID
  4. ELIQUIS [Concomitant]
     Active Substance: APIXABAN
     Indication: Cerebrovascular accident

REACTIONS (3)
  - Obstructive shock [Recovered/Resolved]
  - Cardiac tamponade [Recovered/Resolved]
  - Pericardial effusion [Recovered/Resolved]

NARRATIVE: CASE EVENT DATE: 20220111
